FAERS Safety Report 9091937 (Version 1)
Quarter: 2013Q1

REPORT INFORMATION
  Report Type: Report from Study
  Country: US (occurrence: US)
  Receive Date: 20130201
  Receipt Date: 20130201
  Transmission Date: 20140127
  Serious: No
  Sender: FDA-Public Use
  Company Number: US-ABBOTT-12P-163-1027493-00

PATIENT
  Age: 51 Year
  Sex: Male

DRUGS (3)
  1. HUMIRA [Suspect]
     Indication: PSORIASIS
     Dates: start: 201210
  2. DIOVAN [Concomitant]
     Indication: HYPERTENSION
  3. METOPROL ZOK MEPHA [Concomitant]
     Indication: HYPERTENSION

REACTIONS (1)
  - Injection site reaction [Not Recovered/Not Resolved]
